FAERS Safety Report 6566866-4 (Version None)
Quarter: 2010Q1

REPORT INFORMATION
  Report Type: 
  Country: None (occurrence: None)
  Receive Date: 20100202
  Receipt Date: 20100127
  Transmission Date: 20100710
  Serious: Yes (Hospitalization)
  Sender: FDA-Public Use
  Company Number: B0629288A

PATIENT
  Sex: Female

DRUGS (7)
  1. AUGMENTIN [Suspect]
     Indication: BRONCHITIS
     Route: 048
     Dates: start: 20100108, end: 20100109
  2. ISOPTIN [Concomitant]
     Route: 065
  3. LASILIX [Concomitant]
     Route: 065
  4. LIPANTHYL [Concomitant]
     Route: 065
  5. PREVISCAN [Concomitant]
     Route: 065
  6. INSULIN [Concomitant]
     Route: 065
  7. METFORMIN HCL [Concomitant]
     Route: 065

REACTIONS (9)
  - ACUTE GENERALISED EXANTHEMATOUS PUSTULOSIS [None]
  - GLOSSODYNIA [None]
  - HYPOALBUMINAEMIA [None]
  - LEUKOCYTOSIS [None]
  - ORAL DISORDER [None]
  - PRURITUS [None]
  - PYREXIA [None]
  - RASH ERYTHEMATOUS [None]
  - RASH PUSTULAR [None]
